FAERS Safety Report 12646816 (Version 1)
Quarter: 2016Q3

REPORT INFORMATION
  Report Type: Spontaneous
  Country: US (occurrence: US)
  Receive Date: 20160812
  Receipt Date: 20160812
  Transmission Date: 20161109
  Serious: Yes (Other)
  Sender: FDA-Public Use
  Company Number: US-TEVA-684368ACC

PATIENT
  Age: 26 Year
  Sex: Female
  Weight: 82.17 kg

DRUGS (1)
  1. PARAGARD T 380A [Suspect]
     Active Substance: COPPER
     Indication: CONTRACEPTION
     Dates: start: 20160714, end: 20160804

REACTIONS (3)
  - Device dislocation [Recovered/Resolved]
  - Dysmenorrhoea [Unknown]
  - Menorrhagia [Unknown]

NARRATIVE: CASE EVENT DATE: 20160725
